FAERS Safety Report 23320748 (Version 1)
Quarter: 2023Q4

REPORT INFORMATION
  Report Type: Spontaneous
  Country: US (occurrence: None)
  Receive Date: 20231219
  Receipt Date: 20231219
  Transmission Date: 20240110
  Serious: No
  Sender: FDA-Public Use
  Company Number: None

PATIENT
  Age: 61 Year
  Sex: Male

DRUGS (10)
  1. REPATHA [Suspect]
     Active Substance: EVOLOCUMAB
     Indication: Arteriosclerosis
     Dosage: 1ML Q2WEEKS SQ
     Route: 058
     Dates: start: 20231207, end: 20231218
  2. BUPROPION HYDROCHLORIDE [Concomitant]
     Active Substance: BUPROPION HYDROCHLORIDE
  3. CYMBALTA [Concomitant]
     Active Substance: DULOXETINE HYDROCHLORIDE
  4. DICLOFENAC [Concomitant]
     Active Substance: DICLOFENAC
  5. ELAVIL [Concomitant]
     Active Substance: AMITRIPTYLINE HYDROCHLORIDE
  6. FLUTICASONE NASAL SP [Concomitant]
  7. LISINOPRIL [Concomitant]
     Active Substance: LISINOPRIL
  8. NEURONTIN [Concomitant]
     Active Substance: GABAPENTIN
  9. SKELAXIN [Concomitant]
     Active Substance: METAXALONE
  10. TRILIPIX DR [Concomitant]

REACTIONS (4)
  - Chest discomfort [None]
  - Throat tightness [None]
  - Blood glucose increased [None]
  - Therapy interrupted [None]

NARRATIVE: CASE EVENT DATE: 20231218
